FAERS Safety Report 7755616-1 (Version None)
Quarter: 2011Q3

REPORT INFORMATION
  Report Type: 
  Country: None (occurrence: None)
  Receive Date: 20110914
  Receipt Date: 20110829
  Transmission Date: 20111222
  Serious: Yes (Other)
  Sender: FDA-Public Use
  Company Number: M1103860

PATIENT
  Age: 65 Year
  Sex: Female

DRUGS (6)
  1. DIVIGEL [Suspect]
     Indication: HYSTERECTOMY
     Dosage: 1 IN 1 D, TOPICAL
     Route: 061
     Dates: start: 20110401, end: 20110829
  2. CARTEOLOL (CARTEOLOL) [Concomitant]
  3. XALATAN [Concomitant]
  4. AZOPT [Concomitant]
  5. ENALAPRIL MALEATE [Concomitant]
  6. ASPIRIN [Concomitant]

REACTIONS (2)
  - ALPHA-1 ANTI-TRYPSIN DECREASED [None]
  - ANTIMITOCHONDRIAL ANTIBODY POSITIVE [None]
